FAERS Safety Report 10812481 (Version 2)
Quarter: 2015Q1

REPORT INFORMATION
  Report Type: Spontaneous
  Country: US (occurrence: US)
  Receive Date: 20150218
  Receipt Date: 20150305
  Transmission Date: 20150721
  Serious: Yes (Hospitalization)
  Sender: FDA-Public Use
  Company Number: US-BIOGENIDEC-2015BI016921

PATIENT
  Age: 73 Year
  Sex: Female

DRUGS (1)
  1. PLEGRIDY [Suspect]
     Active Substance: PEGINTERFERON BETA-1A
     Indication: MULTIPLE SCLEROSIS
     Route: 058
     Dates: start: 20141118

REACTIONS (4)
  - Viral infection [Unknown]
  - Chills [Unknown]
  - Pyrexia [Unknown]
  - Lethargy [Unknown]

NARRATIVE: CASE EVENT DATE: 20150202
